FAERS Safety Report 10668732 (Version 1)
Quarter: 2014Q4

REPORT INFORMATION
  Report Type: Spontaneous
  Country: US (occurrence: US)
  Receive Date: 20141222
  Receipt Date: 20141222
  Transmission Date: 20150529
  Serious: No
  Sender: FDA-Public Use
  Company Number: US-PFIZER INC-2014350463

PATIENT
  Age: 85 Year
  Sex: Male
  Weight: 86 kg

DRUGS (6)
  1. DIGOXIN. [Concomitant]
     Active Substance: DIGOXIN
     Dosage: .25 MG, 2X/DAY
  2. CELEBREX [Suspect]
     Active Substance: CELECOXIB
     Indication: PAIN
     Dosage: 400 MG, DAILY
  3. WARFARIN [Concomitant]
     Active Substance: WARFARIN
     Dosage: 5 MG, DAILY
  4. CELEBREX [Suspect]
     Active Substance: CELECOXIB
     Indication: OSTEOARTHRITIS
     Dosage: 200 MG, 1X/DAY
  5. PAXIL [Concomitant]
     Active Substance: PAROXETINE HYDROCHLORIDE
     Dosage: 40 MG, DAILY
  6. LOXAPINE. [Concomitant]
     Active Substance: LOXAPINE SUCCINATE

REACTIONS (4)
  - Dysaesthesia [Not Recovered/Not Resolved]
  - Paraesthesia [Not Recovered/Not Resolved]
  - Drug ineffective [Unknown]
  - Pruritus [Not Recovered/Not Resolved]
